FAERS Safety Report 4620500-9 (Version None)
Quarter: 2005Q1

REPORT INFORMATION
  Report Type: 
  Country: None (occurrence: None)
  Receive Date: 20050324
  Receipt Date: 20050314
  Transmission Date: 20050727
  Serious: Yes (Hospitalization, Other)
  Sender: FDA-Public Use
  Company Number: 200511056BCC

PATIENT
  Age: 73 Year
  Sex: Female
  Weight: 63.5036 kg

DRUGS (10)
  1. BAYER REGIMEN (ACETYLSALICYLIC ACID) [Suspect]
     Indication: MYOCARDIAL INFARCTION
     Dosage: 162 MG, QD, ORAL; 81 MG, QD, ORAL
     Route: 048
     Dates: start: 20020101
  2. BAYER REGIMEN (ACETYLSALICYLIC ACID) [Suspect]
     Indication: PROPHYLAXIS
     Dosage: 162 MG, QD, ORAL; 81 MG, QD, ORAL
     Route: 048
     Dates: start: 20020101
  3. BAYER REGIMEN (ACETYLSALICYLIC ACID) [Suspect]
     Indication: MYOCARDIAL INFARCTION
     Dosage: 162 MG, QD, ORAL; 81 MG, QD, ORAL
     Route: 048
     Dates: start: 20041018
  4. BAYER REGIMEN (ACETYLSALICYLIC ACID) [Suspect]
     Indication: PROPHYLAXIS
     Dosage: 162 MG, QD, ORAL; 81 MG, QD, ORAL
     Route: 048
     Dates: start: 20041018
  5. PLAVIX [Concomitant]
  6. ZOCOR [Concomitant]
  7. LISINOPRIL [Concomitant]
  8. PRANDIN [Concomitant]
  9. GLYBURIDE [Concomitant]
  10. EYE DROPS [Concomitant]

REACTIONS (2)
  - CEREBROVASCULAR ACCIDENT [None]
  - EPISTAXIS [None]
